FAERS Safety Report 22655704 (Version 1)
Quarter: 2023Q2

REPORT INFORMATION
  Report Type: Spontaneous
  Country: CN (occurrence: CN)
  Receive Date: 20230629
  Receipt Date: 20230629
  Transmission Date: 20230722
  Serious: Yes (Other)
  Sender: FDA-Public Use
  Company Number: CN-PFIZER INC-202300231866

PATIENT

DRUGS (1)
  1. MEDROL [Suspect]
     Active Substance: METHYLPREDNISOLONE
     Indication: Systemic lupus erythematosus
     Dosage: UNK
     Route: 048

REACTIONS (4)
  - Systemic lupus erythematosus [Unknown]
  - Condition aggravated [Unknown]
  - Suspected counterfeit product [Unknown]
  - Poor quality product administered [Unknown]
